FAERS Safety Report 4526737-1 (Version None)
Quarter: 2004Q4

REPORT INFORMATION
  Report Type: 
  Country: None (occurrence: None)
  Receive Date: 20041213
  Receipt Date: 20041130
  Transmission Date: 20050328
  Serious: Yes (Hospitalization)
  Sender: FDA-Public Use
  Company Number: 2004102386

PATIENT
  Age: 44 Year
  Sex: Male

DRUGS (2)
  1. DILANTIN [Suspect]
     Indication: CONVULSION
  2. CLOZAPINE [Suspect]
     Indication: SCHIZOPHRENIA, PARANOID TYPE
     Dosage: (1 D), ORAL
     Route: 048
     Dates: start: 20000301

REACTIONS (5)
  - ANTICONVULSANT TOXICITY [None]
  - ATAXIA [None]
  - CARDIAC DISORDER [None]
  - CONVULSION [None]
  - TREATMENT NONCOMPLIANCE [None]
